FAERS Safety Report 4883625-9 (Version None)
Quarter: 2006Q1

REPORT INFORMATION
  Report Type: 
  Country: None (occurrence: None)
  Receive Date: 20060118
  Receipt Date: 20050824
  Transmission Date: 20060701
  Serious: Yes (Hospitalization, Disabling, Other)
  Sender: FDA-Public Use
  Company Number: US-MERCK-0508USA04076

PATIENT
  Age: 49 Year
  Sex: Female
  Weight: 82 kg

DRUGS (1)
  1. VIOXX [Suspect]
     Indication: ARTHRITIS
     Route: 048
     Dates: start: 20011001, end: 20040909

REACTIONS (24)
  - ABDOMINAL PAIN UPPER [None]
  - ACUTE MYOCARDIAL INFARCTION [None]
  - ANXIETY [None]
  - CEREBROVASCULAR ACCIDENT [None]
  - CORONARY ARTERY OCCLUSION [None]
  - DEPRESSION [None]
  - DIZZINESS [None]
  - DYSPEPSIA [None]
  - HAEMATOCHEZIA [None]
  - HYPERCHOLESTEROLAEMIA [None]
  - HYPERCOAGULATION [None]
  - HYPERLIPIDAEMIA [None]
  - HYPOTENSION [None]
  - HYSTERECTOMY [None]
  - MYOCARDIAL INFARCTION [None]
  - PNEUMONIA [None]
  - RIB FRACTURE [None]
  - SINUS TACHYCARDIA [None]
  - SPLENIC INFARCTION [None]
  - SYSTEMIC LUPUS ERYTHEMATOSUS [None]
  - TREMOR [None]
  - UPPER LIMB FRACTURE [None]
  - VENTRICULAR EXTRASYSTOLES [None]
  - WRIST FRACTURE [None]
